FAERS Safety Report 8822685 (Version 3)
Quarter: 2013Q1

REPORT INFORMATION
  Report Type: Report from Study
  Country: CN (occurrence: CN)
  Receive Date: 20121003
  Receipt Date: 20130315
  Transmission Date: 20140127
  Serious: Yes (Death, Hospitalization)
  Sender: FDA-Public Use
  Company Number: CN-BRISTOL-MYERS SQUIBB COMPANY-16985939

PATIENT
  Age: 58 Year
  Sex: Male
  Weight: 50 kg

DRUGS (21)
  1. CARBOPLATIN [Suspect]
     Indication: NON-SMALL CELL LUNG CANCER
     Dosage: REC DOSE:20FEB12,870 MG
     Route: 042
     Dates: start: 20120105
  2. PACLITAXEL [Suspect]
     Indication: NON-SMALL CELL LUNG CANCER
     Dosage: LAST DOSE: 20-FEB-2012
     Route: 042
     Dates: start: 20120105
  3. BLINDED: BEVACIZUMAB [Suspect]
     Indication: NON-SMALL CELL LUNG CANCER
     Dosage: INFUSION; RECENT DOSE 20FEB2012
     Route: 042
     Dates: start: 20120105
  4. BLINDED: PLACEBO [Suspect]
     Indication: NON-SMALL CELL LUNG CANCER
     Dates: start: 20120105
  5. TRAMADOL HCL [Concomitant]
     Dosage: 04JAN-20JAN12, 25JAN12-07FEB12, INJECTION
     Dates: start: 20120104
  6. DIHYDROCODEINE + PARACETAMOL [Concomitant]
     Dosage: 1 DF = TAB
     Dates: start: 20111215, end: 20120118
  7. AMLODIPINE BESYLATE [Concomitant]
     Indication: HYPERTENSION
     Dosage: TABS, 01DEC11-17JAN2012, 26JAN12-20FEB12, 19FEB-13MAR12
     Dates: start: 20111201, end: 20120313
  8. NATEGLINIDE [Concomitant]
     Indication: DIABETES MELLITUS
     Dosage: 03DEC11-17JAN2012, 26JAN12-20FEB12, 18FEB-01MAR12
     Dates: start: 20111203, end: 20120220
  9. METFORMIN HCL [Concomitant]
     Indication: DIABETES MELLITUS
     Dosage: 10DEC11-20JAN12, 26JAN2012-01FEB12,TABS
     Dates: start: 20111210, end: 20120201
  10. BISACODYL [Concomitant]
     Indication: CONSTIPATION
     Dosage: 12DEC11-18JAN12(38D), 31JAN12-07FEB12(8D). TABS, 21FEB12-29FEB12(9D)
     Dates: start: 20111212, end: 20120229
  11. CAPTOPRIL [Concomitant]
     Indication: HYPERTENSION
     Dosage: TABS,14DEC11-20JAN12
     Dates: start: 20111214
  12. ALPRAZOLAM [Concomitant]
     Indication: INSOMNIA
     Dosage: 14DEC11-17JAN12
  13. HYDROTALCITE [Concomitant]
     Indication: DYSPEPSIA
     Dosage: 10JAN12-17JAN12(8D), 31JAN12-07FEB12(8D), 19FEB12-19MAR12(30D), TABS, 19FEB12-29FEB12(11D)
     Dates: start: 20120110, end: 20120229
  14. AMLODIPINE BESYLATE [Concomitant]
     Indication: HYPERTENSION
     Dosage: TAB
     Dates: start: 20120219, end: 20120313
  15. MYRTOL [Concomitant]
     Dates: start: 20120219, end: 20120312
  16. DEXAMETHASONE SODIUM PHOSPHATE [Concomitant]
     Dosage: 29-29JAN12, 20-20FEB12
     Dates: start: 20120129, end: 20120220
  17. RIBOFLAVIN PHOSPHATE SODIUM [Concomitant]
     Dosage: 29-29JAN12, 20-20FEB12
     Dates: start: 20120129, end: 20120220
  18. CIMETIDINE [Concomitant]
     Dosage: INJ
     Dates: start: 20120220, end: 20120220
  19. TROPISETRON HCL [Concomitant]
     Dosage: 29-29JAN12(1D), 20-20FEB12(1D)
     Dates: start: 20120129, end: 20120220
  20. THYMOSIN ALPHA-1 [Concomitant]
     Dosage: INJ
     Dates: start: 20120220, end: 20120220
  21. ERYTHROPOIETIN [Concomitant]
     Indication: ANAEMIA

REACTIONS (2)
  - Multi-organ failure [Fatal]
  - Sinus tachycardia [Not Recovered/Not Resolved]
